FAERS Safety Report 15846248 (Version 1)
Quarter: 2019Q1

REPORT INFORMATION
  Report Type: Spontaneous
  Country: US (occurrence: US)
  Receive Date: 20190120
  Receipt Date: 20190120
  Transmission Date: 20190417
  Serious: Yes (Hospitalization, Other)
  Sender: FDA-Public Use
  Company Number: PHHY2019US006733

PATIENT
  Age: 75 Year
  Sex: Female

DRUGS (6)
  1. METHOTREXATE. [Suspect]
     Active Substance: METHOTREXATE
     Dosage: 25 UNK, UNK
     Route: 065
  2. METHOTREXATE. [Suspect]
     Active Substance: METHOTREXATE
     Dosage: 30 MG, QW
     Route: 065
  3. PREDNISONE. [Suspect]
     Active Substance: PREDNISONE
     Indication: PEMPHIGOID
     Dosage: 60 MG, QD
     Route: 048
  4. METHOTREXATE. [Suspect]
     Active Substance: METHOTREXATE
     Indication: PEMPHIGOID
     Dosage: 15 MG, QW
     Route: 065
  5. MYCOPHENOLATE MOFETIL. [Suspect]
     Active Substance: MYCOPHENOLATE MOFETIL
     Indication: PEMPHIGOID
     Dosage: 1000 MG, BID
     Route: 065
  6. H.P. ACTHAR [Concomitant]
     Active Substance: CORTICOTROPIN
     Indication: PEMPHIGOID
     Dosage: 80 UNK, UNK
     Route: 058
     Dates: start: 201606

REACTIONS (18)
  - Ecchymosis [Unknown]
  - Arthralgia [Unknown]
  - Nausea [Unknown]
  - Anaemia [Unknown]
  - Nervousness [Unknown]
  - Corneal defect [Unknown]
  - Decreased appetite [Unknown]
  - Alopecia [Unknown]
  - Urinary tract infection [Unknown]
  - Ulcerative keratitis [Unknown]
  - Fatigue [Unknown]
  - Muscular weakness [Unknown]
  - Rash [Unknown]
  - Pneumonia [Unknown]
  - Conjunctival irritation [Unknown]
  - Abdominal pain [Unknown]
  - Cushingoid [Unknown]
  - Swelling [Unknown]
